FAERS Safety Report 9229550 (Version 3)
Quarter: 2013Q3

REPORT INFORMATION
  Report Type: Spontaneous
  Country: US (occurrence: US)
  Receive Date: 20130413
  Receipt Date: 20130920
  Transmission Date: 20140515
  Serious: Yes (Death, Other)
  Sender: FDA-Public Use
  Company Number: US-B.I. PHARMACEUTICALS,INC./RIDGEFIELD-2013-BI-09675BP

PATIENT
  Age: 57 Year
  Sex: Female
  Weight: 132.45 kg

DRUGS (19)
  1. PRADAXA [Suspect]
     Indication: ATRIAL FIBRILLATION
     Dosage: 300 MG
     Route: 048
     Dates: start: 20111027, end: 20121207
  2. METFORMIN [Concomitant]
     Route: 048
  3. SITAGLIPTIN [Concomitant]
     Route: 048
  4. ASPIRIN [Concomitant]
     Dosage: 81 MG
     Route: 048
  5. DRONEDARONE HCL [Concomitant]
     Indication: HEADACHE
     Dosage: 800 MG
     Route: 048
  6. METOPROLOL TARTRATE [Concomitant]
     Indication: HYPERTENSION
     Dosage: 80 MG
     Route: 048
  7. NITROGLYCERIN [Concomitant]
     Route: 060
  8. LYRICA [Concomitant]
     Indication: PAIN
     Dosage: 100 MG
     Route: 048
  9. ROPINIROLE HCL [Concomitant]
     Indication: MOOD ALTERED
     Dosage: 0.5 MG
     Route: 048
  10. ROPINIROLE HCL [Concomitant]
     Indication: BIPOLAR DISORDER
  11. ACETAMINOPHEN-HYDROCODONE [Concomitant]
     Route: 048
  12. ZOLPIDEM [Concomitant]
     Dosage: 10 MG
     Route: 048
  13. FUROSEMIDE [Concomitant]
     Dosage: 40 MG
     Route: 048
  14. GLIPIZIDE [Concomitant]
     Dosage: 20 MG
     Route: 048
  15. LISINOPRIL [Concomitant]
     Dosage: 20 MG
     Route: 048
  16. LITHIUM CARB [Concomitant]
     Dosage: 150 MG
     Route: 048
  17. RISPERIDONE [Concomitant]
     Dosage: 2 MG
     Route: 048
  18. SIMVASTATIN [Concomitant]
     Dosage: 80 MG
     Route: 048
  19. SPIRIVA HANDIHALER [Concomitant]
     Dosage: 18 MCG
     Route: 055

REACTIONS (3)
  - Non-small cell lung cancer [Fatal]
  - Rectal haemorrhage [Recovered/Resolved]
  - Anaemia [Unknown]
